FAERS Safety Report 12852076 (Version 1)
Quarter: 2016Q4

REPORT INFORMATION
  Report Type: Spontaneous
  Country: US (occurrence: US)
  Receive Date: 20161014
  Receipt Date: 20161014
  Transmission Date: 20170207
  Serious: Yes (Disabling)
  Sender: FDA-Public Use
  Company Number: None

PATIENT
  Age: 23 Year
  Sex: Female
  Weight: 69.75 kg

DRUGS (3)
  1. ZICAM COLD REMEDY SWABS [Suspect]
     Active Substance: ZINC GLUCONATE
     Indication: NASOPHARYNGITIS
     Dosage: 1 SWAP SWABBED AROUND MY NOSTRILS
     Dates: start: 20161013, end: 20161013
  2. TYLENOL COLD AND FLU [Concomitant]
     Active Substance: ACETAMINOPHEN\DEXTROMETHORPHAN HYDROBROMIDE\GUAIFENESIN\PHENYLEPHRINE HYDROCHLORIDE
  3. ADDERALL XR [Concomitant]
     Active Substance: AMPHETAMINE ASPARTATE\AMPHETAMINE SULFATE\DEXTROAMPHETAMINE SACCHARATE\DEXTROAMPHETAMINE SULFATE

REACTIONS (7)
  - Asphyxia [None]
  - Dyspnoea [None]
  - Dry throat [None]
  - Pain in jaw [None]
  - Odynophagia [None]
  - Heart rate increased [None]
  - Dry mouth [None]

NARRATIVE: CASE EVENT DATE: 20161013
